FAERS Safety Report 8358000-5 (Version None)
Quarter: 2012Q2

REPORT INFORMATION
  Report Type: 
  Country: None (occurrence: None)
  Receive Date: 20120514
  Receipt Date: 20120505
  Transmission Date: 20120825
  Serious: Yes (Hospitalization)
  Sender: FDA-Public Use
  Company Number: US-PURDUE-USA-2012-0086642

PATIENT
  Sex: Male
  Weight: 104.31 kg

DRUGS (2)
  1. BUTRANS [Suspect]
     Indication: PSORIATIC ARTHROPATHY
     Dosage: 10 MCG/HR, UNK
     Dates: start: 20120401
  2. ACETONE [Suspect]
     Indication: ACCIDENTAL EXPOSURE

REACTIONS (4)
  - SOMNOLENCE [None]
  - NAUSEA [None]
  - HEADACHE [None]
  - EXPOSURE TO TOXIC AGENT [None]
